FAERS Safety Report 4266302-7 (Version None)
Quarter: 2004Q1

REPORT INFORMATION
  Report Type: 
  Country: None (occurrence: None)
  Receive Date: 20040107
  Receipt Date: 20040105
  Transmission Date: 20041129
  Serious: Yes (Hospitalization)
  Sender: FDA-Public Use
  Company Number: WAES 0401FRA00006

PATIENT
  Age: 89 Year
  Sex: Female

DRUGS (5)
  1. AMBROXOL HYDROCHLORIDE [Concomitant]
  2. HYDROXYZINE HYDROCHLORIDE [Concomitant]
  3. LORAZEPAM [Concomitant]
  4. SINGULAIR [Suspect]
     Route: 048
     Dates: start: 20031017, end: 20031031
  5. MEDICINALPRODUCT NOT SPECIFIED BY SENDER [Concomitant]
     Indication: CONSTIPATION

REACTIONS (2)
  - ABNORMAL BEHAVIOUR [None]
  - HYPERKINESIA [None]
